FAERS Safety Report 7989100-7 (Version None)
Quarter: 2011Q4

REPORT INFORMATION
  Report Type: 
  Country: None (occurrence: None)
  Receive Date: 20111219
  Receipt Date: 20111208
  Transmission Date: 20120403
  Serious: Yes (Other)
  Sender: FDA-Public Use
  Company Number: US-US-EMD SERONO, INC.-233152J10USA

PATIENT
  Sex: Female

DRUGS (4)
  1. TEGRETOL [Concomitant]
     Indication: TRIGEMINAL NEURALGIA
  2. VALTREX [Concomitant]
  3. BACLOFEN [Concomitant]
     Indication: TRIGEMINAL NEURALGIA
  4. REBIF [Suspect]
     Indication: MULTIPLE SCLEROSIS
     Route: 058
     Dates: start: 20100108

REACTIONS (3)
  - CHOLELITHIASIS [None]
  - INJECTION SITE HAEMATOMA [None]
  - FEELING HOT [None]
